FAERS Safety Report 8618870-X (Version None)
Quarter: 2012Q3

REPORT INFORMATION
  Report Type: 
  Country: None (occurrence: None)
  Receive Date: 20120824
  Receipt Date: 20120821
  Transmission Date: 20120928
  Serious: Yes (Hospitalization)
  Sender: FDA-Public Use
  Company Number: JP-PFIZER INC-2012205650

PATIENT

DRUGS (1)
  1. SUTENT [Suspect]
     Route: 048

REACTIONS (1)
  - HEPATITIS FULMINANT [None]
